FAERS Safety Report 16641961 (Version 2)
Quarter: 2019Q3

REPORT INFORMATION
  Report Type: Spontaneous
  Country: US (occurrence: US)
  Receive Date: 20190729
  Receipt Date: 20190904
  Transmission Date: 20191004
  Serious: Yes (Other)
  Sender: FDA-Public Use
  Company Number: US-PFIZER INC-2017121225

PATIENT
  Age: 82 Year
  Sex: Female

DRUGS (3)
  1. SYNTHROID [Concomitant]
     Active Substance: LEVOTHYROXINE SODIUM
     Indication: THYROID DISORDER
     Dosage: 1 DF, 1X/DAY
     Route: 048
  2. LYRICA [Suspect]
     Active Substance: PREGABALIN
     Dosage: 300 MG, (150 MG ONE IN THE MORNING AND ONE AT NIGHT)
  3. LYRICA [Suspect]
     Active Substance: PREGABALIN
     Indication: LIMB DISCOMFORT
     Dosage: 750 MG, DAILY (150 MG CAPSULE 2 IN MORNING 1 AT DINNER AND 2 AT BED TIME)

REACTIONS (3)
  - Overdose [Unknown]
  - Macular degeneration [Unknown]
  - Intentional product misuse [Unknown]
